FAERS Safety Report 4368465-1 (Version None)
Quarter: 2004Q2

REPORT INFORMATION
  Report Type: 
  Country: None (occurrence: None)
  Receive Date: 20040528
  Receipt Date: 20040525
  Transmission Date: 20050107
  Serious: Yes (Hospitalization, Other)
  Sender: FDA-Public Use
  Company Number: DEWYE748910MAY04

PATIENT
  Age: 52 Year
  Sex: Female

DRUGS (7)
  1. VENLAFAXINE HCL [Suspect]
     Route: 048
     Dates: start: 20040507, end: 20040507
  2. ALCOHOL (ETHANOL, O) [Suspect]
     Route: 048
     Dates: start: 20040507, end: 20040507
  3. ROHYPNOL (FLUNITRAZEPAM, O) [Suspect]
     Route: 048
     Dates: start: 20040507, end: 20040507
  4. ROHYPNOL (FLUNITRAZEPAM, O) [Suspect]
  5. TAXILAN (PERAZINE, O) [Suspect]
     Route: 048
     Dates: start: 20040507, end: 20040507
  6. TAXILAN (PERAZINE, O) [Suspect]
  7. ZOPICLONE (ZOPICLONE, O) [Suspect]
     Route: 048
     Dates: start: 20040507, end: 20040507

REACTIONS (8)
  - BLOOD ALCOHOL INCREASED [None]
  - DYSARTHRIA [None]
  - HYPOTENSION [None]
  - HYPOTHERMIA [None]
  - INTENTIONAL OVERDOSE [None]
  - LIPASE INCREASED [None]
  - RESPIRATORY DEPRESSION [None]
  - SOMNOLENCE [None]
